FAERS Safety Report 10510063 (Version 1)
Quarter: 2014Q4

REPORT INFORMATION
  Report Type: Spontaneous
  Country: US (occurrence: None)
  Receive Date: 20141009
  Receipt Date: 20141009
  Transmission Date: 20150528
  Serious: Yes (Life-Threatening)
  Sender: FDA-Public Use
  Company Number: None

PATIENT
  Age: 65 Year
  Sex: Male
  Weight: 55.79 kg

DRUGS (7)
  1. VITAMIN D3 [Concomitant]
     Active Substance: CHOLECALCIFEROL
  2. ATORVASTATIN [Concomitant]
     Active Substance: ATORVASTATIN
  3. OMEGA 3 [Concomitant]
     Active Substance: OMEGA-3 FATTY ACIDS
  4. MULTIVITAMINS [Concomitant]
     Active Substance: VITAMINS
  5. LUMIGAN [Concomitant]
     Active Substance: BIMATOPROST
     Dosage: 2.5 ML  0.01% SOLN ; ONE DROP NIGHTLY
  6. CALCIUM AND VITAMIN D [Concomitant]
     Active Substance: CALCIUM\VITAMIN D
  7. PROPOFOL. [Suspect]
     Active Substance: PROPOFOL
     Indication: COLONOSCOPY
     Dates: start: 20140626

REACTIONS (9)
  - Dermatitis infected [None]
  - Wound [None]
  - Basal cell carcinoma [None]
  - Blood glucose increased [None]
  - Blood alkaline phosphatase increased [None]
  - Blood cholesterol increased [None]
  - Low density lipoprotein increased [None]
  - Staphylococcal infection [None]
  - Blood triglycerides increased [None]

NARRATIVE: CASE EVENT DATE: 20140626
